FAERS Safety Report 8168481-8 (Version None)
Quarter: 2012Q1

REPORT INFORMATION
  Report Type: 
  Country: None (occurrence: None)
  Receive Date: 20120227
  Receipt Date: 20120227
  Transmission Date: 20120608
  Serious: Yes (Other)
  Sender: FDA-Public Use
  Company Number: None

PATIENT
  Sex: Male

DRUGS (4)
  1. DIGOXIN [Concomitant]
  2. PREDNISONE [Concomitant]
     Route: 048
  3. PRADAXA [Suspect]
     Indication: TRANSFUSION
     Dosage: 150MG
     Route: 048
     Dates: start: 20120117, end: 20120216
  4. FLECINIE [Concomitant]

REACTIONS (1)
  - RECTAL HAEMORRHAGE [None]
